FAERS Safety Report 8212566-4 (Version None)
Quarter: 2012Q1

REPORT INFORMATION
  Report Type: 
  Country: None (occurrence: None)
  Receive Date: 20120229
  Receipt Date: 20110914
  Transmission Date: 20120608
  Serious: Yes (Other)
  Sender: FDA-Public Use
  Company Number: 335457

PATIENT
  Age: 58 Year
  Sex: Male

DRUGS (3)
  1. METFORMIN HCL [Concomitant]
  2. NOVOLIN N [Suspect]
     Indication: PRODUCT USED FOR UNKNOWN INDICATION
  3. LISINOPRIL [Concomitant]

REACTIONS (4)
  - ROAD TRAFFIC ACCIDENT [None]
  - HYPOGLYCAEMIC UNCONSCIOUSNESS [None]
  - BLOOD GLUCOSE FLUCTUATION [None]
  - DRUG INEFFECTIVE [None]
